FAERS Safety Report 20253456 (Version 1)
Quarter: 2021Q4

REPORT INFORMATION
  Report Type: Spontaneous
  Country: US (occurrence: US)
  Receive Date: 20211230
  Receipt Date: 20211230
  Transmission Date: 20220303
  Serious: Yes (Hospitalization, Other)
  Sender: FDA-Public Use
  Company Number: US-PURDUE-USA-2020-0227298

PATIENT
  Sex: Male

DRUGS (15)
  1. OXYCONTIN [Suspect]
     Active Substance: OXYCODONE HYDROCHLORIDE
     Indication: Product used for unknown indication
     Dosage: 20 MG, UNK
     Route: 048
  2. DILAUDID [Suspect]
     Active Substance: HYDROMORPHONE HYDROCHLORIDE
     Indication: Product used for unknown indication
     Dosage: UNKNOWN
     Route: 048
  3. OXYCODONE HYDROCHLORIDE [Suspect]
     Active Substance: OXYCODONE HYDROCHLORIDE
     Indication: Product used for unknown indication
     Dosage: 30 MG, UNK
     Route: 048
  4. OXYCODONE HYDROCHLORIDE [Suspect]
     Active Substance: OXYCODONE HYDROCHLORIDE
     Dosage: 10 MG, UNK
     Route: 048
  5. OXYCODONE HYDROCHLORIDE [Suspect]
     Active Substance: OXYCODONE HYDROCHLORIDE
     Dosage: 20 MG, UNK
     Route: 048
  6. OXYCODONE HYDROCHLORIDE [Suspect]
     Active Substance: OXYCODONE HYDROCHLORIDE
     Indication: Product used for unknown indication
     Dosage: 30 MG, UNK
     Route: 048
  7. OXYCODONE HYDROCHLORIDE [Suspect]
     Active Substance: OXYCODONE HYDROCHLORIDE
     Dosage: 10 MG, UNK
     Route: 048
  8. HYDROCODONE BITARTRATE AND ACETAMINOPHEN [Suspect]
     Active Substance: ACETAMINOPHEN\HYDROCODONE BITARTRATE
     Indication: Product used for unknown indication
     Dosage: 10 MG, UNK
     Route: 048
  9. HYDROMORPHONE [Suspect]
     Active Substance: HYDROMORPHONE
     Indication: Product used for unknown indication
     Dosage: 4 MG, UNK
     Route: 048
  10. FENTANYL [Suspect]
     Active Substance: FENTANYL
     Indication: Product used for unknown indication
     Dosage: 10 MCG, Q1H PATCH
     Route: 062
  11. FENTANYL [Suspect]
     Active Substance: FENTANYL
     Dosage: 25 MCG, Q1H PATCH
     Route: 062
  12. FENTANYL [Suspect]
     Active Substance: FENTANYL
     Dosage: 50 MCG, Q1H PATCH
     Route: 062
  13. FENTANYL [Suspect]
     Active Substance: FENTANYL
     Dosage: 75 MCG, Q1H PATCH
     Route: 062
  14. FENTANYL [Suspect]
     Active Substance: FENTANYL
     Dosage: 100 MCG, Q1H PATCH
     Route: 062
  15. NORCO [Suspect]
     Active Substance: ACETAMINOPHEN\HYDROCODONE BITARTRATE
     Indication: Product used for unknown indication
     Dosage: 10-325 MG
     Route: 048

REACTIONS (4)
  - Overdose [Unknown]
  - Drug dependence [Unknown]
  - Emotional distress [Unknown]
  - Pain [Unknown]
